FAERS Safety Report 17143551 (Version 1)
Quarter: 2019Q4

REPORT INFORMATION
  Report Type: Spontaneous
  Country: US (occurrence: US)
  Receive Date: 20191211
  Receipt Date: 20191211
  Transmission Date: 20200122
  Serious: Yes (Other)
  Sender: FDA-Public Use
  Company Number: US-AMERICAN REGENT INC-20191199

PATIENT
  Age: 56 Year
  Sex: Female
  Weight: 67 kg

DRUGS (6)
  1. MIRCERA [Suspect]
     Active Substance: METHOXY POLYETHYLENE GLYCOL-EPOETIN BETA
     Dosage: 225 MCG, 1 IN 2 WEEK 1 MINUTES
     Dates: start: 20190529, end: 20190605
  2. VENOFER [Suspect]
     Active Substance: IRON SUCROSE
     Indication: PRODUCT USED FOR UNKNOWN INDICATION
     Dosage: 100 MG
  3. HEPARIN [Concomitant]
     Active Substance: HEPARIN SODIUM
     Dosage: 1600 IU
     Dates: start: 20181128
  4. IRON [Concomitant]
     Active Substance: IRON
     Indication: ANAEMIA
     Dosage: 100 MG
     Dates: start: 20190410
  5. HEPARIN [Concomitant]
     Active Substance: HEPARIN SODIUM
     Dosage: 4000 IU
     Route: 042
     Dates: start: 20181128
  6. VITAMIN D [Concomitant]
     Active Substance: VITAMIN D NOS
     Dosage: 0.5 MCG
     Route: 048
     Dates: start: 20190220

REACTIONS (1)
  - Loss of consciousness [Recovered/Resolved]

NARRATIVE: CASE EVENT DATE: 20190529
